FAERS Safety Report 8569064 (Version 3)
Quarter: 2013Q2

REPORT INFORMATION
  Report Type: Spontaneous
  Country: US (occurrence: US)
  Receive Date: 20120518
  Receipt Date: 20130402
  Transmission Date: 20140414
  Serious: No
  Sender: FDA-Public Use
  Company Number: US-ASTRAZENECA-2012SE25700

PATIENT
  Age: 71 Year
  Sex: Female

DRUGS (4)
  1. ATACAND [Suspect]
     Route: 048
  2. ATACAND [Suspect]
     Dosage: GENERIC
     Route: 048
  3. NEXIUM [Suspect]
     Dosage: GENERIC
     Route: 048
  4. NEXIUM [Suspect]
     Route: 048

REACTIONS (4)
  - Lethargy [Unknown]
  - Cardiac disorder [Unknown]
  - Flatulence [Unknown]
  - Cough [Unknown]
